FAERS Safety Report 8294456-4 (Version None)
Quarter: 2012Q2

REPORT INFORMATION
  Report Type: 
  Country: None (occurrence: None)
  Receive Date: 20120418
  Receipt Date: 20120416
  Transmission Date: 20120825
  Serious: No
  Sender: FDA-Public Use
  Company Number: US-TEVA-333632USA

PATIENT
  Sex: Male
  Weight: 70.37 kg

DRUGS (4)
  1. QUINAPRIL [Concomitant]
     Indication: HYPERTENSION
     Route: 048
  2. METOPROLOL TARTRATE [Concomitant]
     Indication: HYPERTENSION
     Route: 048
  3. PROAIR HFA [Suspect]
     Indication: CHRONIC OBSTRUCTIVE PULMONARY DISEASE
     Route: 055
     Dates: start: 20090101
  4. ACETYLSALICYLIC ACID SRT [Concomitant]
     Route: 048

REACTIONS (3)
  - INSOMNIA [None]
  - FEELING HOT [None]
  - RESTLESSNESS [None]
